FAERS Safety Report 25898582 (Version 2)
Quarter: 2025Q4

REPORT INFORMATION
  Report Type: Spontaneous
  Country: AU (occurrence: AU)
  Receive Date: 20251009
  Receipt Date: 20251205
  Transmission Date: 20260117
  Serious: Yes (Other)
  Sender: CSL BEHRING
  Company Number: AU-BEH-2025220892

PATIENT
  Age: 12 Year
  Sex: Female
  Weight: 53.9 kg

DRUGS (5)
  1. HUMAN IMMUNOGLOBULIN G [Suspect]
     Active Substance: HUMAN IMMUNOGLOBULIN G
     Indication: Stevens-Johnson syndrome
     Dosage: 20 G, TOT (10%)
     Route: 042
     Dates: start: 20250215, end: 20250215
  2. FENTANYL [Concomitant]
     Active Substance: FENTANYL
     Indication: Pain
     Dosage: 25 ?G
     Route: 042
     Dates: start: 20250214, end: 20250215
  3. ACETAMINOPHEN [Concomitant]
     Active Substance: ACETAMINOPHEN
     Indication: Pain
     Dosage: 830 MG
     Route: 048
     Dates: start: 20250214, end: 20250215
  4. ACETAMINOPHEN [Concomitant]
     Active Substance: ACETAMINOPHEN
     Indication: Pyrexia
  5. BETAMETHASONE DIPROPIONATE [Concomitant]
     Active Substance: BETAMETHASONE DIPROPIONATE
     Indication: Rash
     Dosage: UNK
     Route: 061
     Dates: start: 20250214, end: 20250215

REACTIONS (11)
  - Oxygen saturation decreased [Recovered/Resolved]
  - Streptococcus test positive [Recovered/Resolved]
  - Culture throat positive [Recovered/Resolved]
  - Incorrect drug administration rate [Recovered/Resolved]
  - Wheezing [Recovered/Resolved]
  - Chills [Recovered/Resolved]
  - Pyrexia [Not Recovered/Not Resolved]
  - Heart rate increased [Recovered/Resolved]
  - Respiratory rate increased [Recovered/Resolved]
  - Patient uncooperative [Unknown]
  - Off label use [Unknown]

NARRATIVE: CASE EVENT DATE: 20250215
